FAERS Safety Report 16660434 (Version 1)
Quarter: 2019Q3

REPORT INFORMATION
  Report Type: Spontaneous
  Country: TR (occurrence: TR)
  Receive Date: 20190802
  Receipt Date: 20190802
  Transmission Date: 20191004
  Serious: Yes (Other)
  Sender: FDA-Public Use
  Company Number: TR-ROCHE-2361710

PATIENT
  Age: 25 Year
  Sex: Male
  Weight: 76 kg

DRUGS (9)
  1. VINCRISTINE [Concomitant]
     Active Substance: VINCRISTINE
  2. ETOPOSIDE. [Concomitant]
     Active Substance: ETOPOSIDE
  3. DOXORUBICIN [Concomitant]
     Active Substance: DOXORUBICIN
  4. CYTARABINE. [Concomitant]
     Active Substance: CYTARABINE
  5. METHYLPREDNISOLONE. [Concomitant]
     Active Substance: METHYLPREDNISOLONE
  6. RITUXIMAB. [Suspect]
     Active Substance: RITUXIMAB
     Indication: DIFFUSE LARGE B-CELL LYMPHOMA
     Route: 065
  7. PREDNISONE. [Concomitant]
     Active Substance: PREDNISONE
  8. CYCLOPHOSPHAMIDE. [Concomitant]
     Active Substance: CYCLOPHOSPHAMIDE
  9. CISPLATIN. [Concomitant]
     Active Substance: CISPLATIN

REACTIONS (3)
  - Diffuse large B-cell lymphoma recurrent [Unknown]
  - Cytopenia [Unknown]
  - Diffuse large B-cell lymphoma refractory [Unknown]
